FAERS Safety Report 9341544 (Version 2)
Quarter: 2013Q3

REPORT INFORMATION
  Report Type: Spontaneous
  Country: AT (occurrence: None)
  Receive Date: 20130604
  Receipt Date: 20130724
  Transmission Date: 20140515
  Serious: Yes (Hospitalization, Other)
  Sender: FDA-Public Use
  Company Number: 2013036344

PATIENT
  Age: 6 Month
  Sex: Male

DRUGS (1)
  1. PRIVIGEN [Suspect]
     Indication: HYPOGAMMAGLOBULINAEMIA
     Dosage: 2.5G/DL
     Route: 042
     Dates: start: 20130422, end: 20130422

REACTIONS (3)
  - Suspected transmission of an infectious agent via product [None]
  - Seroconversion test positive [None]
  - Hepatitis B core antibody positive [None]
